FAERS Safety Report 10803729 (Version 4)
Quarter: 2020Q1

REPORT INFORMATION
  Report Type: Report from Study
  Country: US (occurrence: US)
  Receive Date: 20150217
  Receipt Date: 20200116
  Transmission Date: 20200409
  Serious: Yes (Other)
  Sender: FDA-Public Use
  Company Number: US-SA-2013SA122905

PATIENT
  Age: 64 Year
  Sex: Female

DRUGS (5)
  1. TERIFLUNOMIDE. [Suspect]
     Active Substance: TERIFLUNOMIDE
     Dosage: 14 MG,QD
     Route: 065
     Dates: start: 20131120
  2. TERIFLUNOMIDE. [Suspect]
     Active Substance: TERIFLUNOMIDE
     Dosage: 14 MG,QD
     Route: 048
  3. MODAFINIL. [Concomitant]
     Active Substance: MODAFINIL
     Indication: FATIGUE
  4. TERIFLUNOMIDE. [Suspect]
     Active Substance: TERIFLUNOMIDE
     Indication: MULTIPLE SCLEROSIS
     Dosage: 7 MG,QD
     Route: 065
     Dates: start: 20131107, end: 20131119
  5. TERIFLUNOMIDE. [Suspect]
     Active Substance: TERIFLUNOMIDE
     Dosage: 14 MG,QD
     Route: 048
     Dates: start: 20141107

REACTIONS (7)
  - Decreased appetite [Unknown]
  - Product dose omission [Unknown]
  - Alopecia [Not Recovered/Not Resolved]
  - Weight decreased [Recovering/Resolving]
  - Alopecia [Not Recovered/Not Resolved]
  - Upper limb fracture [Unknown]
  - Unevaluable event [Unknown]

NARRATIVE: CASE EVENT DATE: 2013
